FAERS Safety Report 8422381-4 (Version None)
Quarter: 2012Q2

REPORT INFORMATION
  Report Type: 
  Country: None (occurrence: None)
  Receive Date: 20120608
  Receipt Date: 20120531
  Transmission Date: 20120825
  Serious: Yes (Other)
  Sender: FDA-Public Use
  Company Number: FR-UCBSA-058448

PATIENT
  Age: 6 Month

DRUGS (1)
  1. KEPPRA [Suspect]
     Route: 048

REACTIONS (1)
  - NEUTROPENIA [None]
